FAERS Safety Report 8118621 (Version 6)
Quarter: 2012Q4

REPORT INFORMATION
  Report Type: 
  Country: AU (occurrence: AU)
  Receive Date: 20110902
  Receipt Date: 20121024
  Transmission Date: 20130627
  Serious: Yes (Other)
  Sender: FDA-Public Use
  Company Number: AU-JNJFOC-20110808102

PATIENT
  Age: 64 Year
  Sex: Male

DRUGS (7)
  1. STELARA [Suspect]
     Indication: PSORIASIS
     Route: 058
     Dates: start: 20111115
  2. STELARA [Suspect]
     Indication: PSORIASIS
     Route: 058
     Dates: start: 20110726
  3. STELARA [Suspect]
     Indication: PSORIASIS
     Route: 058
     Dates: start: 20110826
  4. STELARA [Suspect]
     Indication: PSORIASIS
     Route: 058
     Dates: start: 20110626
  5. STELARA [Suspect]
     Indication: PSORIASIS
     Route: 058
     Dates: start: 20120301
  6. STELARA [Suspect]
     Indication: PSORIASIS
     Route: 058
     Dates: start: 20120430
  7. STELARA [Suspect]
     Indication: PSORIASIS
     Route: 058
     Dates: start: 20121016

REACTIONS (4)
  - Skin lesion [Unknown]
  - Seborrhoeic keratosis [Unknown]
  - Dizziness [Recovered/Resolved]
  - Psoriasis [Recovering/Resolving]
